FAERS Safety Report 5798705-3 (Version None)
Quarter: 2008Q2

REPORT INFORMATION
  Report Type: 
  Country: None (occurrence: None)
  Receive Date: 20080630
  Receipt Date: 20080611
  Transmission Date: 20081010
  Serious: Yes (Hospitalization)
  Sender: FDA-Public Use
  Company Number: S08-FRA-02138-01

PATIENT
  Age: 82 Year
  Sex: Male

DRUGS (10)
  1. SEROPLEX (ESCITALOPRAM) [Suspect]
     Indication: ANOREXIA
     Dosage: 20 MG QD PO
     Route: 048
     Dates: start: 20080101, end: 20080302
  2. SEROPLEX (ESCITALOPRAM) [Suspect]
     Indication: DEPRESSION
     Dosage: 20 MG QD PO
     Route: 048
     Dates: start: 20080101, end: 20080302
  3. ALDACTONE [Suspect]
     Dosage: 50 MG QD PO
     Route: 048
     Dates: start: 20080227, end: 20080302
  4. ALDACTONE [Suspect]
     Dosage: 50 MG QD PO
     Route: 048
     Dates: start: 20080312
  5. RAMIPRIL [Suspect]
     Dosage: 10 MG QD PO
     Route: 048
     Dates: end: 20080302
  6. FLECAINIDE ACETATE [Suspect]
     Dosage: 100 MG QD PO
     Route: 048
     Dates: start: 20080227, end: 20080302
  7. CORDARONE [Suspect]
     Dates: start: 20080227, end: 20080302
  8. ALDACTAZINE [Concomitant]
  9. MEPRONIZINE [Concomitant]
  10. DOGMATIL (SULPIRIDE) [Concomitant]

REACTIONS (9)
  - AORTIC VALVE INCOMPETENCE [None]
  - ATRIAL FIBRILLATION [None]
  - ELECTROCARDIOGRAM QT PROLONGED [None]
  - GENERAL PHYSICAL HEALTH DETERIORATION [None]
  - HYPONATRAEMIA [None]
  - MITRAL VALVE INCOMPETENCE [None]
  - NAUSEA [None]
  - PALPITATIONS [None]
  - VOMITING [None]
